FAERS Safety Report 9899107 (Version 1)
Quarter: 2014Q1

REPORT INFORMATION
  Report Type: Spontaneous
  Country: US (occurrence: US)
  Receive Date: 20140214
  Receipt Date: 20140214
  Transmission Date: 20141002
  Serious: Yes (Other)
  Sender: FDA-Public Use
  Company Number: US-AMGEN-USASP2014009731

PATIENT
  Age: 69 Year
  Sex: Female

DRUGS (7)
  1. NEULASTA [Suspect]
     Indication: MANTLE CELL LYMPHOMA
     Dosage: UNK
     Route: 065
  2. EPOGEN [Concomitant]
     Indication: ANAEMIA
     Dosage: UNK
  3. RITUXIMAB [Concomitant]
     Indication: MANTLE CELL LYMPHOMA
     Dosage: UNK
  4. CYCLOPHOSPHAMIDE [Concomitant]
     Indication: MANTLE CELL LYMPHOMA
     Dosage: UNK
  5. DOXORUBICIN [Concomitant]
     Indication: MANTLE CELL LYMPHOMA
     Dosage: UNK
  6. VINCRISTINE [Concomitant]
     Indication: MANTLE CELL LYMPHOMA
     Dosage: UNK
  7. PREDNISONE [Concomitant]
     Indication: MANTLE CELL LYMPHOMA
     Dosage: UNK

REACTIONS (1)
  - Drug effect incomplete [Unknown]
